FAERS Safety Report 14871656 (Version 5)
Quarter: 2023Q2

REPORT INFORMATION
  Report Type: Spontaneous
  Country: AT (occurrence: AT)
  Receive Date: 20180509
  Receipt Date: 20230405
  Transmission Date: 20230722
  Serious: Yes (Other)
  Sender: FDA-Public Use
  Company Number: AT-002147023-PHHY2018AT002192

PATIENT

DRUGS (5)
  1. RUXOLITINIB [Suspect]
     Active Substance: RUXOLITINIB
     Indication: Hodgkin^s disease
     Dosage: 10 MG, BID
     Route: 065
  2. RUXOLITINIB [Suspect]
     Active Substance: RUXOLITINIB
     Dosage: 25 MG, BID
     Route: 065
  3. PACLITAXEL [Suspect]
     Active Substance: PACLITAXEL
     Indication: Hodgkin^s disease
     Dosage: UNK
     Route: 065
     Dates: start: 2014, end: 2014
  4. GRANULOCYTE COLONY-STIMULATING FACTOR NOS [Suspect]
     Active Substance: GRANULOCYTE COLONY-STIMULATING FACTOR NOS
     Indication: Hodgkin^s disease
     Dosage: UNK
     Route: 065
     Dates: start: 2014
  5. PIXANTRONE DIMALEATE [Suspect]
     Active Substance: PIXANTRONE DIMALEATE
     Indication: Hodgkin^s disease
     Dosage: 29 MG, UNKNOWN
     Route: 042
     Dates: start: 2014, end: 2014

REACTIONS (6)
  - Lymphadenopathy [Recovered/Resolved]
  - Opportunistic infection [Recovering/Resolving]
  - Hodgkin^s disease [Unknown]
  - Recurrent cancer [Unknown]
  - Product use in unapproved indication [Unknown]
  - Sepsis [Recovered/Resolved]

NARRATIVE: CASE EVENT DATE: 20140101
